FAERS Safety Report 14115771 (Version 2)
Quarter: 2019Q4

REPORT INFORMATION
  Report Type: Spontaneous
  Country: DE (occurrence: DE)
  Receive Date: 20171023
  Receipt Date: 20191217
  Transmission Date: 20200122
  Serious: Yes (Other)
  Sender: FDA-Public Use
  Company Number: DE-TEVA-816281GER

PATIENT
  Age: 1 Day
  Sex: Male
  Weight: 2.37 kg

DRUGS (9)
  1. CELESTAN [Concomitant]
     Active Substance: BETAMETHASONE
     Indication: MATERNAL THERAPY TO ENHANCE FOETAL LUNG MATURITY
     Dosage: 12 MILLIGRAM DAILY;
     Route: 064
     Dates: start: 20170206, end: 20170207
  2. PENICILLIN NOS [Concomitant]
     Active Substance: PENICILLIN
     Indication: PULPITIS DENTAL
     Dosage: 1000 MILLIGRAM DAILY;
     Route: 064
  3. NEPRESOL [Concomitant]
     Indication: HYPERTENSION
     Dosage: 25 MILLIGRAM DAILY;
     Route: 064
     Dates: start: 20170201, end: 20170201
  4. FOLIO FORTE [Concomitant]
     Active Substance: FOLIC ACID\VITAMINS
     Indication: PROPHYLAXIS OF NEURAL TUBE DEFECT
     Dosage: .8 MILLIGRAM DAILY;
     Route: 064
  5. L-THYROXIN [Concomitant]
     Active Substance: LEVOTHYROXINE SODIUM
     Indication: AUTOIMMUNE THYROIDITIS
     Dosage: 125 (MICROGRAM/D (BIS 100))
     Route: 064
     Dates: start: 20160705, end: 20170328
  6. MEDIKINET ADULT [Concomitant]
     Active Substance: METHYLPHENIDATE
     Indication: ATTENTION DEFICIT/HYPERACTIVITY DISORDER
     Dosage: 50 MILLIGRAM DAILY;
     Route: 064
     Dates: start: 20160705, end: 20160912
  7. CEFUROXIM [Concomitant]
     Active Substance: CEFUROXIME
     Indication: TONSILLITIS
     Dosage: 250 MILLIGRAM DAILY;
     Route: 064
  8. PRESINOL [Concomitant]
     Active Substance: METHYLDOPA
     Indication: HYPERTENSION
     Dosage: 500 MILLIGRAM DAILY;
     Route: 064
     Dates: start: 20170202, end: 20170328
  9. ATENOLOL. [Suspect]
     Active Substance: ATENOLOL
     Indication: HYPERTENSION
     Dosage: 75 MILLIGRAM DAILY; 75 (MG/D (BIS 50))
     Route: 064
     Dates: start: 20160705, end: 20170131

REACTIONS (2)
  - Small for dates baby [Unknown]
  - Foetal exposure during pregnancy [Unknown]

NARRATIVE: CASE EVENT DATE: 20170328
